FAERS Safety Report 5591211-0 (Version None)
Quarter: 2008Q1

REPORT INFORMATION
  Report Type: 
  Country: None (occurrence: None)
  Receive Date: 20080115
  Receipt Date: 20070118
  Transmission Date: 20080703
  Serious: No
  Sender: FDA-Public Use
  Company Number: US-ABBOTT-07P-163-0356623-00

PATIENT
  Sex: Male
  Weight: 72.64 kg

DRUGS (3)
  1. HYTRIN [Suspect]
     Indication: PROSTATOMEGALY
     Route: 048
     Dates: start: 19930101
  2. CLOPIDOGREL BISULFATE [Concomitant]
     Indication: CARDIOVASCULAR EVENT PROPHYLAXIS
     Route: 048
  3. CARVEDILOL [Concomitant]
     Indication: CARDIOVASCULAR EVENT PROPHYLAXIS
     Route: 048

REACTIONS (3)
  - DRUG INEFFECTIVE [None]
  - DYSURIA [None]
  - URINARY RETENTION [None]
